FAERS Safety Report 10700603 (Version 1)
Quarter: 2015Q1

REPORT INFORMATION
  Report Type: Spontaneous
  Country: US (occurrence: None)
  Receive Date: 20150108
  Receipt Date: 20150108
  Transmission Date: 20150721
  Serious: No
  Sender: FDA-Public Use
  Company Number: None

PATIENT
  Sex: Male
  Weight: 87.3 kg

DRUGS (2)
  1. SOVALDI [Suspect]
     Active Substance: SOFOSBUVIR
     Indication: HEPATITIS
     Route: 048
     Dates: start: 201409
  2. RIBAVIRIN CAPSULES 200 MG ZYDUS [Suspect]
     Active Substance: RIBAVIRIN
     Indication: HEPATITIS
     Route: 048
     Dates: start: 201409

REACTIONS (1)
  - Dry skin [None]
